FAERS Safety Report 5014669-4 (Version None)
Quarter: 2006Q2

REPORT INFORMATION
  Report Type: 
  Country: None (occurrence: None)
  Receive Date: 20060531
  Receipt Date: 20060428
  Transmission Date: 20061013
  Serious: Yes (Other)
  Sender: FDA-Public Use
  Company Number: PHNU2006DE01808

PATIENT
  Age: 69 Year
  Sex: Female
  Weight: 63 kg

DRUGS (1)
  1. COMBIPATCH [Suspect]
     Indication: MENOPAUSAL SYMPTOMS
     Dosage: UNK, UNK
     Route: 062

REACTIONS (8)
  - CONSTIPATION [None]
  - DRUG INEFFECTIVE [None]
  - ERYTHEMA [None]
  - MALAISE [None]
  - MENOPAUSAL SYMPTOMS [None]
  - RESTLESSNESS [None]
  - SKIN IRRITATION [None]
  - SUDDEN HEARING LOSS [None]
